FAERS Safety Report 10509729 (Version 1)
Quarter: 2014Q4

REPORT INFORMATION
  Report Type: Spontaneous
  Country: US (occurrence: US)
  Receive Date: 20141010
  Receipt Date: 20141010
  Transmission Date: 20150528
  Serious: No
  Sender: FDA-Public Use
  Company Number: US-BIOGENIDEC-2014BI103918

PATIENT
  Age: 48 Year
  Sex: Female

DRUGS (1)
  1. TYSABRI [Suspect]
     Active Substance: NATALIZUMAB
     Indication: MULTIPLE SCLEROSIS
     Route: 042
     Dates: start: 20101229, end: 20140701

REACTIONS (6)
  - Liver injury [Recovered/Resolved]
  - Peripheral swelling [Not Recovered/Not Resolved]
  - Hepatic steatosis [Not Recovered/Not Resolved]
  - Hepatic enzyme increased [Recovered/Resolved]
  - Blood bilirubin increased [Not Recovered/Not Resolved]
  - General symptom [Not Recovered/Not Resolved]

NARRATIVE: CASE EVENT DATE: 20140916
